FAERS Safety Report 5061505-6 (Version None)
Quarter: 2006Q3

REPORT INFORMATION
  Report Type: 
  Country: None (occurrence: None)
  Receive Date: 20060721
  Receipt Date: 20060708
  Transmission Date: 20061208
  Serious: Yes (Other)
  Sender: FDA-Public Use
  Company Number: 2006-145215-NL

PATIENT
  Age: 51 Year
  Sex: Female
  Weight: 62.6 kg

DRUGS (3)
  1. NUVARING [Suspect]
     Indication: MENSTRUAL DISORDER
     Dosage: VAGINAL, 4 TO 6 WEEKS IN AND 1 WEEK FREE
     Route: 067
     Dates: start: 20040101
  2. LUNESTA [Concomitant]
  3. DETROL LA [Concomitant]

REACTIONS (3)
  - ADHESION [None]
  - COMPLICATION OF DEVICE REMOVAL [None]
  - VAGINAL DISORDER [None]
